FAERS Safety Report 4553304-6 (Version None)
Quarter: 2005Q1

REPORT INFORMATION
  Report Type: 
  Country: None (occurrence: None)
  Receive Date: 20050113
  Receipt Date: 20050104
  Transmission Date: 20050727
  Serious: No
  Sender: FDA-Public Use
  Company Number: 2005-123958-NL

PATIENT
  Age: 35 Year
  Sex: Female

DRUGS (1)
  1. MIRTAZAPINE [Suspect]
     Indication: DEPRESSION
     Dosage: 45 MG QD
     Route: 048
     Dates: start: 20040212, end: 20041101

REACTIONS (1)
  - TEMPORAL LOBE EPILEPSY [None]
